FAERS Safety Report 21995240 (Version 1)
Quarter: 2023Q1

REPORT INFORMATION
  Report Type: Spontaneous
  Country: GB (occurrence: GB)
  Receive Date: 20230215
  Receipt Date: 20230215
  Transmission Date: 20230418
  Serious: Yes (Other)
  Sender: FDA-Public Use
  Company Number: GB-AMGEN-GBRSP2023027183

PATIENT
  Age: 68 Year
  Sex: Female

DRUGS (3)
  1. ADALIMUMAB [Suspect]
     Active Substance: ADALIMUMAB
     Indication: Axial spondyloarthritis
     Dosage: UNK
     Route: 065
  2. AMLODIPINE [Concomitant]
     Active Substance: AMLODIPINE BESYLATE
     Indication: Hypertension
     Dosage: UNK
  3. RAMIPRIL [Concomitant]
     Active Substance: RAMIPRIL
     Indication: Hypertension
     Dosage: UNK

REACTIONS (7)
  - Iridocyclitis [Recovering/Resolving]
  - Angle closure glaucoma [Unknown]
  - Cataract [Unknown]
  - Cutaneous vasculitis [Recovering/Resolving]
  - Drug intolerance [Unknown]
  - Bronchial wall thickening [Unknown]
  - Lung opacity [Unknown]
